FAERS Safety Report 6248942-9 (Version None)
Quarter: 2009Q2

REPORT INFORMATION
  Report Type: 
  Country: None (occurrence: None)
  Receive Date: 20090629
  Receipt Date: 20090617
  Transmission Date: 20091009
  Serious: Yes (Hospitalization)
  Sender: FDA-Public Use
  Company Number: NZ-AVENTIS-200916311GDDC

PATIENT
  Age: 67 Year
  Sex: Female

DRUGS (1)
  1. LEFLUNOMIDE [Suspect]
     Route: 048
     Dates: start: 20060501

REACTIONS (4)
  - ABSCESS [None]
  - CELLULITIS [None]
  - HYPERKERATOSIS [None]
  - SKIN FISSURES [None]
